FAERS Safety Report 10726304 (Version 1)
Quarter: 2015Q1

REPORT INFORMATION
  Report Type: Spontaneous
  Country: US (occurrence: US)
  Receive Date: 20150121
  Receipt Date: 20150121
  Transmission Date: 20150721
  Serious: No
  Sender: FDA-Public Use
  Company Number: US-DURATA THERAPEUTICS INTERNATIONAL-US-DUR-14-000198

PATIENT
  Sex: Male

DRUGS (2)
  1. DALVANCE [Suspect]
     Active Substance: DALBAVANCIN
     Indication: LOCALISED INFECTION
  2. DALVANCE [Suspect]
     Active Substance: DALBAVANCIN

REACTIONS (2)
  - Rash [Unknown]
  - Pyrexia [Unknown]
